FAERS Safety Report 25712044 (Version 2)
Quarter: 2025Q4

REPORT INFORMATION
  Report Type: Spontaneous
  Country: BR (occurrence: BR)
  Receive Date: 20250821
  Receipt Date: 20251020
  Transmission Date: 20260118
  Serious: Yes (Hospitalization)
  Sender: TAIHO ONCOLOGY INC
  Company Number: BR-SERVIER-S23015272

PATIENT
  Age: 46 Year
  Sex: Male

DRUGS (5)
  1. LONSURF [Suspect]
     Active Substance: TIPIRACIL HYDROCHLORIDE\TRIFLURIDINE
     Indication: Spinal cord neoplasm
     Dosage: 60 MG, BID, 3 TABLETS A DAY IN THE MORNING AND 3 TABLETS AT NIGHT, D1-D5 AND D8-D12 OF A 28-DAY CYCL
     Route: 048
     Dates: start: 202506
  2. LONSURF [Suspect]
     Active Substance: TIPIRACIL HYDROCHLORIDE\TRIFLURIDINE
     Indication: Muscle neoplasm
  3. PURAN [Concomitant]
     Active Substance: LEVOTHYROXINE SODIUM
     Indication: Thyroid disorder
     Dosage: UNK
     Route: 065
  4. PREGABALIN [Concomitant]
     Active Substance: PREGABALIN
     Indication: Procedural pain
     Dosage: UNK
     Route: 065
  5. DIPYRONE [Concomitant]
     Active Substance: DIPYRONE
     Indication: Procedural pain
     Dosage: UNK
     Route: 065

REACTIONS (2)
  - Post procedural inflammation [Recovered/Resolved]
  - Off label use [Recovered/Resolved]

NARRATIVE: CASE EVENT DATE: 20250601
